FAERS Safety Report 9021974 (Version 1)
Quarter: 2013Q1

REPORT INFORMATION
  Report Type: Report from Study
  Country: CA (occurrence: CA)
  Receive Date: 20130118
  Receipt Date: 20130118
  Transmission Date: 20140127
  Serious: Yes (Death)
  Sender: FDA-Public Use
  Company Number: CA-ROCHE-1180992

PATIENT
  Sex: Male
  Weight: 63.5 kg

DRUGS (5)
  1. XELODA [Suspect]
     Indication: COLORECTAL CANCER METASTATIC
     Route: 048
     Dates: start: 201210
  2. ADVAGRAF [Concomitant]
  3. PREDNISONE [Concomitant]
  4. TESTOSTERONE [Concomitant]
  5. TYLENOL EXTRA STRENGTH [Concomitant]

REACTIONS (1)
  - Death [Fatal]
